FAERS Safety Report 7600243-X (Version None)
Quarter: 2011Q3

REPORT INFORMATION
  Report Type: 
  Country: None (occurrence: None)
  Receive Date: 20110711
  Receipt Date: 20110630
  Transmission Date: 20111222
  Serious: Yes (Hospitalization)
  Sender: FDA-Public Use
  Company Number: FR-MILLENNIUM PHARMACEUTICALS, INC.-2011-02876

PATIENT

DRUGS (7)
  1. VELCADE [Suspect]
     Indication: MULTIPLE MYELOMA
     Dosage: 2.3 MG, CYCLIC
     Route: 042
     Dates: start: 20110104
  2. ZELITREX                           /01269702/ [Concomitant]
     Route: 065
  3. DOXORUBICIN HYDROCHLORIDE [Suspect]
     Indication: MULTIPLE MYELOMA
     Dosage: 70 MG, CYCLIC
     Route: 042
     Dates: start: 20110104, end: 20110128
  4. DEXAMETHASONE [Concomitant]
     Indication: MULTIPLE MYELOMA
     Dosage: 40 MG, UNK
     Route: 042
     Dates: start: 20110104
  5. DEXAMETHASONE [Concomitant]
     Dosage: 20 UNK, UNK
     Route: 042
     Dates: start: 20110104
  6. BACTRIM [Concomitant]
     Route: 065
  7. SEROXAT                            /00830801/ [Concomitant]
     Dosage: 20 MG, UNK
     Route: 065

REACTIONS (3)
  - PHARYNGEAL INFLAMMATION [None]
  - SKIN HYPERPIGMENTATION [None]
  - RASH ERYTHEMATOUS [None]
